FAERS Safety Report 4587957-3 (Version None)
Quarter: 2005Q1

REPORT INFORMATION
  Report Type: 
  Country: None (occurrence: None)
  Receive Date: 20050215
  Receipt Date: 20050203
  Transmission Date: 20050727
  Serious: Yes (Hospitalization)
  Sender: FDA-Public Use
  Company Number: 105915ISR

PATIENT
  Age: 46 Year
  Sex: Female

DRUGS (2)
  1. GLATIRAMER ACETATE [Suspect]
     Indication: MULTIPLE SCLEROSIS
     Dosage: 20 MG
     Route: 058
     Dates: start: 20030501
  2. ULTRACAIN D-S FORTE [Suspect]
     Indication: LOCAL ANAESTHESIA

REACTIONS (5)
  - DEPRESSION [None]
  - MUSCLE TWITCHING [None]
  - PANIC ATTACK [None]
  - SUICIDAL IDEATION [None]
  - TACHYCARDIA [None]
